FAERS Safety Report 6078409-2 (Version None)
Quarter: 2009Q1

REPORT INFORMATION
  Report Type: 
  Country: None (occurrence: None)
  Receive Date: 20090212
  Receipt Date: 20090130
  Transmission Date: 20090719
  Serious: Yes (Other)
  Sender: FDA-Public Use
  Company Number: 2009US000221

PATIENT
  Age: 43 Year
  Sex: Female

DRUGS (1)
  1. PROGRAF [Suspect]
     Indication: LIVER TRANSPLANT

REACTIONS (4)
  - APHASIA [None]
  - FLUID OVERLOAD [None]
  - PULMONARY OEDEMA [None]
  - STARING [None]
